FAERS Safety Report 12483607 (Version 1)
Quarter: 2016Q2

REPORT INFORMATION
  Report Type: Spontaneous
  Country: US (occurrence: US)
  Receive Date: 20160621
  Receipt Date: 20160621
  Transmission Date: 20160815
  Serious: No
  Sender: FDA-Public Use
  Company Number: US-ZYDUS-008461

PATIENT
  Sex: Male

DRUGS (2)
  1. ACETYLSALICYLIC ACID [Concomitant]
     Active Substance: ASPIRIN
     Indication: PRODUCT USED FOR UNKNOWN INDICATION
  2. TAMSULOSIN/TAMSULOSIN HYDROCHLORIDE [Suspect]
     Active Substance: TAMSULOSIN HYDROCHLORIDE
     Indication: NEPHROLITHIASIS
     Route: 048
     Dates: start: 20140816, end: 20141001

REACTIONS (2)
  - Ejaculation disorder [Not Recovered/Not Resolved]
  - Dysuria [Not Recovered/Not Resolved]
